FAERS Safety Report 14892353 (Version 1)
Quarter: 2018Q2

REPORT INFORMATION
  Report Type: Spontaneous
  Country: US (occurrence: US)
  Receive Date: 20180514
  Receipt Date: 20180514
  Transmission Date: 20180711
  Serious: No
  Sender: FDA-Public Use
  Company Number: US-UNITED THERAPEUTICS-UNT-2018-003137

PATIENT
  Age: 71 Year
  Sex: Female
  Weight: 65.31 kg

DRUGS (2)
  1. LETAIRIS [Concomitant]
     Active Substance: AMBRISENTAN
     Indication: PRODUCT USED FOR UNKNOWN INDICATION
     Route: 065
  2. REMODULIN [Suspect]
     Active Substance: TREPROSTINIL
     Indication: PULMONARY ARTERIAL HYPERTENSION
     Dosage: 0.077 ?G/KG, CONTINUING
     Route: 041
     Dates: start: 20130806

REACTIONS (7)
  - Hot flush [Recovering/Resolving]
  - Heart rate increased [Recovering/Resolving]
  - Abdominal pain [Recovering/Resolving]
  - Device issue [Unknown]
  - Overdose [Recovering/Resolving]
  - Malaise [Recovering/Resolving]
  - Oxygen saturation abnormal [Recovering/Resolving]

NARRATIVE: CASE EVENT DATE: 20180303
